FAERS Safety Report 16135631 (Version 2)
Quarter: 2022Q1

REPORT INFORMATION
  Report Type: Spontaneous
  Country: US (occurrence: US)
  Receive Date: 20190329
  Receipt Date: 20220215
  Transmission Date: 20220423
  Serious: No
  Sender: FDA-Public Use
  Company Number: US-PFIZER INC-2019126136

PATIENT
  Age: 9 Year
  Sex: Female
  Weight: 22.68 kg

DRUGS (3)
  1. GENOTROPIN [Suspect]
     Active Substance: SOMATROPIN
     Indication: Growth hormone deficiency
     Dosage: 1 MG, DAILY [1MG BY INJECTION ONCE DAILY FOR 6 DAYS]
     Dates: start: 20190309
  2. GENOTROPIN [Suspect]
     Active Substance: SOMATROPIN
     Dosage: 0.5 MG, DAILY
     Dates: start: 20190308
  3. GENOTROPIN [Suspect]
     Active Substance: SOMATROPIN
     Dosage: ALTERNATE 1.4 AND 1.6 DAILY

REACTIONS (2)
  - Injection site extravasation [Unknown]
  - Needle issue [Unknown]

NARRATIVE: CASE EVENT DATE: 20190315
